FAERS Safety Report 25795522 (Version 1)
Quarter: 2025Q3

REPORT INFORMATION
  Report Type: Spontaneous
  Country: US (occurrence: None)
  Receive Date: 20250911
  Receipt Date: 20250911
  Transmission Date: 20251020
  Serious: Yes (Hospitalization)
  Sender: FDA-CTU
  Company Number: None

PATIENT
  Age: 80 Year
  Sex: Male
  Weight: 74.39 kg

DRUGS (1)
  1. ENBREL [Suspect]
     Active Substance: ETANERCEPT
     Indication: Arthritis
     Dosage: OTHER STRENGTH : 50 MG/ML, 50 MG/ML;?FREQUENCY : WEEKLY;?
     Route: 058

REACTIONS (1)
  - Gastrointestinal disorder [None]

NARRATIVE: CASE EVENT DATE: 20250828
